FAERS Safety Report 8118345-0 (Version None)
Quarter: 2012Q1

REPORT INFORMATION
  Report Type: 
  Country: None (occurrence: None)
  Receive Date: 20120207
  Receipt Date: 20120131
  Transmission Date: 20120608
  Serious: Yes (Other)
  Sender: FDA-Public Use
  Company Number: NO-PFIZER INC-2012029057

PATIENT
  Age: 31 Year
  Sex: Female

DRUGS (1)
  1. EFFEXOR [Suspect]

REACTIONS (2)
  - PERFORMANCE STATUS DECREASED [None]
  - PARAESTHESIA [None]
